FAERS Safety Report 15599157 (Version 7)
Quarter: 2019Q1

REPORT INFORMATION
  Report Type: Spontaneous
  Country: PL (occurrence: PL)
  Receive Date: 20181108
  Receipt Date: 20190214
  Transmission Date: 20190417
  Serious: Yes (Life-Threatening, Hospitalization, Other)
  Sender: FDA-Public Use
  Company Number: PL-MYLANLABS-2018M1083973

PATIENT
  Age: 78 Year
  Sex: Male

DRUGS (6)
  1. DIGOXIN. [Interacting]
     Active Substance: DIGOXIN
     Dosage: 30 DOSAGE FORM, TOTAL
  2. THEOPHYLLINE [Interacting]
     Active Substance: THEOPHYLLINE ANHYDROUS
     Dosage: 30 DOSAGE FORM, TOTAL
  3. ZOLPIDEM [Interacting]
     Active Substance: ZOLPIDEM\ZOLPIDEM TARTRATE
     Dosage: 20 DOSAGE FORM, TOTAL
     Route: 065
  4. THEOPHYLLINE [Interacting]
     Active Substance: THEOPHYLLINE ANHYDROUS
     Indication: PRODUCT USED FOR UNKNOWN INDICATION
     Dosage: 150 MG, UNK (30 TABLETS) (4.5 G)
     Route: 065
  5. DIGOXIN. [Interacting]
     Active Substance: DIGOXIN
     Indication: PRODUCT USED FOR UNKNOWN INDICATION
     Dosage: 0.25 MG, UNK (30 TABLETS) (7.5 MG)
     Route: 065
  6. ZOLPIDEM [Suspect]
     Active Substance: ZOLPIDEM\ZOLPIDEM TARTRATE
     Indication: PRODUCT USED FOR UNKNOWN INDICATION
     Dosage: 10 MG, UNK (20 TABLETS) (200 MG)
     Route: 065

REACTIONS (11)
  - Ventricular arrhythmia [Recovered/Resolved]
  - Suicide attempt [Unknown]
  - Normocytic anaemia [Recovering/Resolving]
  - Suicidal ideation [Recovering/Resolving]
  - Drug interaction [Unknown]
  - Myocardial infarction [Recovered/Resolved]
  - Hypotension [Recovering/Resolving]
  - Toxicity to various agents [Recovered/Resolved]
  - Electrocardiogram repolarisation abnormality [Unknown]
  - Conduction disorder [Recovering/Resolving]
  - Atrioventricular block first degree [Recovering/Resolving]
